FAERS Safety Report 12214129 (Version 2)
Quarter: 2016Q2

REPORT INFORMATION
  Report Type: Other
  Country: US (occurrence: US)
  Receive Date: 20160328
  Receipt Date: 20160421
  Transmission Date: 20160815
  Serious: Yes (Disabling)
  Sender: FDA-Public Use
  Company Number: US-ACORDA-ACO_122331_2016

PATIENT
  Sex: Male

DRUGS (6)
  1. VITAMIN D [Concomitant]
     Active Substance: CHOLECALCIFEROL
     Indication: PRODUCT USED FOR UNKNOWN INDICATION
     Dosage: 50000 IU, WEEKLY
     Route: 065
  2. FELODIPINE. [Concomitant]
     Active Substance: FELODIPINE
     Indication: HYPERTENSION
     Dosage: 1 DF, QD
     Route: 065
  3. AMPYRA [Suspect]
     Active Substance: DALFAMPRIDINE
     Indication: GAIT DISTURBANCE
     Dosage: 10 MG, BID
     Route: 048
  4. TECFIDERA [Concomitant]
     Active Substance: DIMETHYL FUMARATE
     Indication: MULTIPLE SCLEROSIS
     Dosage: 1 DF, BID
     Route: 065
  5. LISINOPRIL. [Concomitant]
     Active Substance: LISINOPRIL
     Indication: BLOOD CHOLESTEROL INCREASED
     Dosage: 1 DF, QD
     Route: 065
  6. SIMVASTATIN. [Concomitant]
     Active Substance: SIMVASTATIN
     Indication: PRODUCT USED FOR UNKNOWN INDICATION
     Dosage: 1 DF, QD
     Route: 065

REACTIONS (2)
  - Drug dose omission [Unknown]
  - Activities of daily living impaired [Recovering/Resolving]
